FAERS Safety Report 15113653 (Version 1)
Quarter: 2018Q3

REPORT INFORMATION
  Report Type: Spontaneous
  Country: IT (occurrence: IT)
  Receive Date: 20180706
  Receipt Date: 20180706
  Transmission Date: 20181010
  Serious: Yes (Hospitalization)
  Sender: FDA-Public Use
  Company Number: IT-TEVA-2018-IT-921644

PATIENT
  Age: 73 Year
  Sex: Female

DRUGS (8)
  1. LORTAAN 100 MG COMPRESSE RIVESTITE CON FILM [Suspect]
     Active Substance: LOSARTAN POTASSIUM
     Indication: HYPERTENSION
     Dosage: 1 DOSAGE FORMS DAILY;
     Route: 048
     Dates: start: 20180101, end: 20180401
  2. EUTIROX 50 MICROGRAMMI COMPRESSE [Concomitant]
  3. DAPAROX 20 MG COMPRESSE RIVESTITE CON FILM [Concomitant]
     Active Substance: PAROXETINE HYDROCHLORIDE
  4. TRIAZOLAM. [Concomitant]
     Active Substance: TRIAZOLAM
  5. CARBOLITHIUM 300 MG CAPSULE RIGIDE [Concomitant]
     Active Substance: LITHIUM CARBONATE
  6. CLOZAPINA CHIESI 100 MG COMPRESSE [Concomitant]
  7. RAMIPRIL. [Suspect]
     Active Substance: RAMIPRIL
     Indication: HYPERTENSION
     Dosage: 5 MILLIGRAM DAILY;
     Route: 048
     Dates: start: 20180101, end: 20180401
  8. LASIX [Suspect]
     Active Substance: FUROSEMIDE
     Indication: HYPERTENSION
     Route: 042
     Dates: start: 20180101, end: 20180401

REACTIONS (3)
  - Acute kidney injury [Unknown]
  - Carbon dioxide increased [Unknown]
  - Acute respiratory failure [Unknown]

NARRATIVE: CASE EVENT DATE: 20180331
